FAERS Safety Report 14497637 (Version 1)
Quarter: 2018Q1

REPORT INFORMATION
  Report Type: Spontaneous
  Country: JP (occurrence: JP)
  Receive Date: 20180207
  Receipt Date: 20180207
  Transmission Date: 20180509
  Serious: Yes (Other)
  Sender: FDA-Public Use
  Company Number: JP-ASTRAZENECA-2018SE14317

PATIENT
  Sex: Male

DRUGS (4)
  1. ZOLADEX LA [Suspect]
     Active Substance: GOSERELIN ACETATE
     Indication: PROSTATE CANCER
     Route: 058
  2. CASODEX [Suspect]
     Active Substance: BICALUTAMIDE
     Indication: PROSTATE CANCER
     Route: 048
  3. LH-RH [Concomitant]
     Indication: PROSTATE CANCER
     Dosage: DOSE UNKNOWN
     Route: 065
  4. CASODEX [Suspect]
     Active Substance: BICALUTAMIDE
     Indication: PROSTATE CANCER
     Route: 048

REACTIONS (4)
  - Influenza [Not Recovered/Not Resolved]
  - Blood alkaline phosphatase increased [Unknown]
  - Fracture [Unknown]
  - Bone pain [Unknown]
